FAERS Safety Report 10101768 (Version 1)
Quarter: 2014Q2

REPORT INFORMATION
  Report Type: Spontaneous
  Country: US (occurrence: None)
  Receive Date: 20140423
  Receipt Date: 20140423
  Transmission Date: 20141212
  Serious: Yes (Other)
  Sender: FDA-Public Use
  Company Number: None

PATIENT
  Age: 53 Year
  Sex: Female
  Weight: 94.35 kg

DRUGS (1)
  1. BENICAR HCT [Suspect]
     Indication: HYPERTENSION
     Dosage: 1 X DAY ALTERNATING 1     ONCE DAILY TAKEN BY MOUTH
     Route: 048

REACTIONS (11)
  - Fatigue [None]
  - Depression [None]
  - Dizziness [None]
  - Panic attack [None]
  - Dizziness [None]
  - Impaired driving ability [None]
  - Sick sinus syndrome [None]
  - Feeling abnormal [None]
  - Muscle spasms [None]
  - Blood cholesterol increased [None]
  - Blood glucose increased [None]
